FAERS Safety Report 18050226 (Version 1)
Quarter: 2020Q3

REPORT INFORMATION
  Report Type: Spontaneous
  Country: GB (occurrence: GB)
  Receive Date: 20200721
  Receipt Date: 20200721
  Transmission Date: 20201103
  Serious: Yes (Other)
  Sender: FDA-Public Use
  Company Number: GB-PERRIGO-20GB010224

PATIENT
  Age: 64 Year
  Sex: Female
  Weight: 80 kg

DRUGS (4)
  1. DICLOFENAC SODIUM. [Concomitant]
     Active Substance: DICLOFENAC SODIUM
     Dosage: 3 DF QD
     Dates: start: 20110204, end: 20200410
  2. OMEPRAZOLE. [Concomitant]
     Active Substance: OMEPRAZOLE
     Dosage: 2 DF, QD
     Dates: start: 20200623
  3. ESOMEPRAZOLE 20MG GASTRO?RESISTANT CAPSULES [Suspect]
     Active Substance: ESOMEPRAZOLE
     Route: 048
     Dates: start: 20200424
  4. CEFALEXIN [Concomitant]
     Active Substance: CEPHALEXIN
     Dosage: NIGHT
     Dates: start: 20190918

REACTIONS (3)
  - Diarrhoea [Recovered/Resolved]
  - Dry mouth [Recovered/Resolved]
  - Abdominal pain [Unknown]

NARRATIVE: CASE EVENT DATE: 20200623
